FAERS Safety Report 16213508 (Version 3)
Quarter: 2020Q1

REPORT INFORMATION
  Report Type: Report from Study
  Country: US (occurrence: US)
  Receive Date: 20190418
  Receipt Date: 20200227
  Transmission Date: 20200409
  Serious: Yes (Other)
  Sender: FDA-Public Use
  Company Number: US-REGENERON PHARMACEUTICALS, INC.-2019-26670

PATIENT

DRUGS (3)
  1. EYLEA [Suspect]
     Active Substance: AFLIBERCEPT
     Dosage: 2MG/0.05ML, Q6W, LEFT EYE, LAST DOSE
     Route: 031
     Dates: start: 20190307, end: 20190307
  2. EYLEA [Suspect]
     Active Substance: AFLIBERCEPT
     Indication: RETINAL NEOVASCULARISATION
     Dosage: 2MG/0.05ML, Q6W, LEFT EYE
     Route: 031
     Dates: start: 20190118, end: 20190426
  3. EYLEA [Suspect]
     Active Substance: AFLIBERCEPT
     Dosage: 2MG/0.05ML, Q6W, LEFT EYE, FIRST DOSE
     Route: 031
     Dates: start: 20190118, end: 20190118

REACTIONS (4)
  - Thrombosis [Recovered/Resolved]
  - Chromatopsia [Recovered/Resolved]
  - Off label use [Unknown]
  - Headache [Recovered/Resolved]

NARRATIVE: CASE EVENT DATE: 20190304
